FAERS Safety Report 9422619 (Version 2)
Quarter: 2013Q3

REPORT INFORMATION
  Report Type: Spontaneous
  Country: US (occurrence: US)
  Receive Date: 20130726
  Receipt Date: 20130822
  Transmission Date: 20140515
  Serious: No
  Sender: FDA-Public Use
  Company Number: US-PFIZER INC-2013215786

PATIENT
  Age: 60 Year
  Sex: Male
  Weight: 114.74 kg

DRUGS (11)
  1. EPIPEN [Suspect]
     Indication: SWELLING
     Dosage: 0.3 MG, AS NEEDED
     Route: 030
     Dates: end: 20130718
  2. EPIPEN [Suspect]
     Indication: ANAPHYLACTIC REACTION
  3. BENADRYL [Suspect]
     Indication: SWELLING
     Dosage: UNK
     Route: 065
  4. TRAMADOL [Concomitant]
     Dosage: UNK
     Route: 065
  5. VALIUM [Concomitant]
     Dosage: UNK
     Route: 065
  6. PRAVASTATIN [Concomitant]
     Dosage: UNK
     Route: 065
  7. GLYBURIDE [Concomitant]
     Dosage: UNK
     Route: 065
  8. STRATTERA [Concomitant]
     Dosage: UNK
     Route: 065
  9. VESICARE [Concomitant]
     Dosage: UNK
     Route: 065
  10. PULMICORT [Concomitant]
     Dosage: UNK
     Route: 065
  11. ZOLPIDEM TARTRATE [Concomitant]
     Dosage: UNK
     Route: 065

REACTIONS (5)
  - Expired drug administered [Unknown]
  - Drug ineffective [Recovered/Resolved]
  - Restless legs syndrome [Unknown]
  - Insomnia [Unknown]
  - Somnolence [Unknown]
